FAERS Safety Report 17289445 (Version 1)
Quarter: 2020Q1

REPORT INFORMATION
  Report Type: Spontaneous
  Country: CA (occurrence: CA)
  Receive Date: 20200120
  Receipt Date: 20200120
  Transmission Date: 20200409
  Serious: Yes (Death, Hospitalization, Other)
  Sender: FDA-Public Use
  Company Number: CA-TEVA-2020-CA-1169802

PATIENT
  Age: 83 Year
  Sex: Female

DRUGS (3)
  1. NUCALA [Suspect]
     Active Substance: MEPOLIZUMAB
     Indication: PRODUCT USED FOR UNKNOWN INDICATION
     Route: 065
  2. SALBUTAMOL [Suspect]
     Active Substance: ALBUTEROL
     Indication: PRODUCT USED FOR UNKNOWN INDICATION
     Route: 065
  3. NUCALA [Suspect]
     Active Substance: MEPOLIZUMAB
     Indication: ASTHMA
     Route: 042

REACTIONS (17)
  - Arthralgia [Fatal]
  - Cardiac failure [Fatal]
  - Limb injury [Fatal]
  - Anaemia [Fatal]
  - Injection site pain [Fatal]
  - Fatigue [Fatal]
  - Secretion discharge [Fatal]
  - Wound complication [Fatal]
  - Cataract [Fatal]
  - Peripheral swelling [Fatal]
  - Wound secretion [Fatal]
  - Vasculitis [Fatal]
  - Asthma [Fatal]
  - Death [Fatal]
  - Dyspnoea [Fatal]
  - Oedema peripheral [Fatal]
  - Wound infection bacterial [Fatal]
